FAERS Safety Report 4793803-5 (Version None)
Quarter: 2005Q4

REPORT INFORMATION
  Report Type: 
  Country: None (occurrence: None)
  Receive Date: 20051006
  Receipt Date: 20050923
  Transmission Date: 20060501
  Serious: Yes (Hospitalization, Other)
  Sender: FDA-Public Use
  Company Number: KII-2005-0018776

PATIENT
  Age: 43 Year
  Sex: Male

DRUGS (5)
  1. OXYCONTIN [Suspect]
     Indication: PAIN
     Dosage: SEE IMAGE
     Route: 048
  2. VALIUM [Suspect]
     Indication: DRUG USE FOR UNKNOWN INDICATION
     Dosage: SINGLE, ORAL
     Route: 048
  3. BENZODIAZEPINE DERIVATIVES() [Suspect]
     Indication: DRUG USE FOR UNKNOWN INDICATION
     Dosage: SINGLE, ORAL
     Route: 048
  4. ETHANOL(ETHANOL) [Suspect]
     Indication: DRUG USE FOR UNKNOWN INDICATION
     Dosage: SINGLE, ORAL
     Route: 048
  5. TETRAHYDROCANNABINOL(TETRAHYDROCANNABINOL) [Suspect]
     Indication: INTENTIONAL DRUG MISUSE

REACTIONS (8)
  - BLOOD POTASSIUM INCREASED [None]
  - CONSCIOUSNESS FLUCTUATING [None]
  - DRUG ABUSER [None]
  - DYSARTHRIA [None]
  - HEART RATE INCREASED [None]
  - HYPOTENSION [None]
  - MULTIPLE DRUG OVERDOSE [None]
  - SOMNOLENCE [None]
